FAERS Safety Report 5910852-1 (Version None)
Quarter: 2008Q4

REPORT INFORMATION
  Report Type: 
  Country: None (occurrence: None)
  Receive Date: 20081007
  Receipt Date: 20080522
  Transmission Date: 20090506
  Serious: No
  Sender: FDA-Public Use
  Company Number: US-ASTRAZENECA-2008UW10540

PATIENT
  Age: 63 Year
  Sex: Female
  Weight: 74.8 kg

DRUGS (5)
  1. ARIMIDEX [Suspect]
     Indication: BREAST CANCER
     Route: 048
     Dates: start: 20080204
  2. ENALAPRIL MALEATE [Concomitant]
  3. CALCIUM [Concomitant]
  4. VITAMIN D [Concomitant]
  5. LOVAZA [Concomitant]

REACTIONS (5)
  - ASTHENIA [None]
  - DYSPNOEA [None]
  - HYPOTENSION [None]
  - NAUSEA [None]
  - PAIN IN EXTREMITY [None]
